FAERS Safety Report 23153011 (Version 1)
Quarter: 2023Q4

REPORT INFORMATION
  Report Type: Other
  Country: None (occurrence: US)
  Receive Date: 20231107
  Receipt Date: 20231107
  Transmission Date: 20240110
  Serious: No
  Sender: FDA-Public Use
  Company Number: US-Nostrum Laboratories, Inc.-2147882

PATIENT
  Age: 58 Year
  Sex: Female

DRUGS (3)
  1. NITROFURANTOIN [Suspect]
     Active Substance: NITROFURANTOIN
     Indication: Urinary tract infection
     Route: 048
  2. LISINOPRIL [Interacting]
     Active Substance: LISINOPRIL
     Route: 048
  3. IBUPROFEN [Interacting]
     Active Substance: IBUPROFEN
     Route: 048

REACTIONS (1)
  - Rash [Unknown]
